FAERS Safety Report 7711985-X (Version None)
Quarter: 2011Q3

REPORT INFORMATION
  Report Type: 
  Country: None (occurrence: None)
  Receive Date: 20110826
  Receipt Date: 20110816
  Transmission Date: 20111222
  Serious: Yes (Hospitalization)
  Sender: FDA-Public Use
  Company Number: CA-JNJFOC-20110809051

PATIENT
  Sex: Male

DRUGS (2)
  1. REACTINE EXTRA STRENGTH [Suspect]
     Indication: SEASONAL ALLERGY
     Route: 048
  2. REACTINE EXTRA STRENGTH [Suspect]
     Indication: SNEEZING
     Route: 048

REACTIONS (3)
  - AGITATION [None]
  - TRANSIENT GLOBAL AMNESIA [None]
  - TRANSIENT ISCHAEMIC ATTACK [None]
